FAERS Safety Report 19704137 (Version 1)
Quarter: 2021Q3

REPORT INFORMATION
  Report Type: Spontaneous
  Country: US (occurrence: US)
  Receive Date: 20210816
  Receipt Date: 20210816
  Transmission Date: 20211014
  Serious: No
  Sender: FDA-Public Use
  Company Number: US-SA-2021SA269722

PATIENT
  Sex: Male

DRUGS (3)
  1. AUBAGIO [Suspect]
     Active Substance: TERIFLUNOMIDE
     Indication: MULTIPLE SCLEROSIS
     Dosage: 1 DF, QD
     Route: 048
  2. VITAMINS NOS [Concomitant]
     Active Substance: VITAMINS
  3. FISH OIL [Concomitant]
     Active Substance: FISH OIL

REACTIONS (2)
  - Alopecia [Unknown]
  - Hair growth abnormal [Unknown]
